FAERS Safety Report 21658025 (Version 1)
Quarter: 2022Q4

REPORT INFORMATION
  Report Type: Spontaneous
  Country: FR (occurrence: FR)
  Receive Date: 20221129
  Receipt Date: 20221129
  Transmission Date: 20230112
  Serious: Yes (Other)
  Sender: FDA-Public Use
  Company Number: None

PATIENT
  Age: 32 Year
  Sex: Female
  Weight: 96 kg

DRUGS (3)
  1. EBASTINE [Suspect]
     Active Substance: EBASTINE
     Indication: Asthma
     Dosage: 5 MILLIGRAM, QD
     Route: 048
  2. SERETIDE [Suspect]
     Active Substance: FLUTICASONE PROPIONATE\SALMETEROL XINAFOATE
     Indication: Asthma
     Dosage: 4 DOSAGE FORM, QD (250/25 MICROGRAMS /DOSE, (SINGLE DOSE), SUSPENSION FOR INHALATION, PRESSURIZED VI
     Dates: start: 20050622, end: 20210923
  3. XOLAIR [Suspect]
     Active Substance: OMALIZUMAB
     Indication: Asthma
     Dosage: 150 MILLIGRAM, QM (POWDER AND SOLVENT FOR INJECTABLE SOLUTION)
     Dates: start: 20210728, end: 20210923

REACTIONS (1)
  - Abortion spontaneous [Recovered/Resolved]

NARRATIVE: CASE EVENT DATE: 20211101
